FAERS Safety Report 23847536 (Version 1)
Quarter: 2024Q2

REPORT INFORMATION
  Report Type: Spontaneous
  Country: JP (occurrence: JP)
  Receive Date: 20240513
  Receipt Date: 20240513
  Transmission Date: 20240716
  Serious: Yes (Life-Threatening, Hospitalization, Other)
  Sender: FDA-Public Use
  Company Number: JP-STERISCIENCE B.V.-2024-ST-000602

PATIENT
  Age: 40 Year
  Sex: Female

DRUGS (20)
  1. MEROPENEM [Suspect]
     Active Substance: MEROPENEM
     Indication: Septic shock
     Dosage: UNK
     Route: 065
  2. MEROPENEM [Suspect]
     Active Substance: MEROPENEM
     Indication: Septic cardiomyopathy
  3. VANCOMYCIN [Suspect]
     Active Substance: VANCOMYCIN
     Indication: Septic shock
     Dosage: UNK
     Route: 065
  4. VANCOMYCIN [Suspect]
     Active Substance: VANCOMYCIN
     Indication: Septic cardiomyopathy
  5. CLINDAMYCIN [Suspect]
     Active Substance: CLINDAMYCIN
     Indication: Septic shock
     Dosage: UNK
     Route: 065
  6. CLINDAMYCIN [Suspect]
     Active Substance: CLINDAMYCIN
     Indication: Septic cardiomyopathy
  7. HUMAN IMMUNOGLOBULIN G [Suspect]
     Active Substance: HUMAN IMMUNOGLOBULIN G
     Indication: Septic shock
     Dosage: 20 GRAM, QD
     Route: 042
  8. HUMAN IMMUNOGLOBULIN G [Suspect]
     Active Substance: HUMAN IMMUNOGLOBULIN G
     Indication: Septic cardiomyopathy
  9. NOREPINEPHRINE [Suspect]
     Active Substance: NOREPINEPHRINE\NOREPINEPHRINE BITARTRATE
     Indication: Septic shock
     Dosage: UNK
     Route: 065
  10. NOREPINEPHRINE [Suspect]
     Active Substance: NOREPINEPHRINE\NOREPINEPHRINE BITARTRATE
     Indication: Septic cardiomyopathy
     Dosage: UNK, REDUCED
     Route: 065
  11. VASOPRESSIN [Suspect]
     Active Substance: VASOPRESSIN
     Indication: Septic shock
     Dosage: UNK
     Route: 065
  12. VASOPRESSIN [Suspect]
     Active Substance: VASOPRESSIN
     Indication: Septic cardiomyopathy
  13. HYDROCORTISONE [Suspect]
     Active Substance: HYDROCORTISONE
     Indication: Septic shock
     Dosage: UNK
     Route: 065
  14. HYDROCORTISONE [Suspect]
     Active Substance: HYDROCORTISONE
     Indication: Septic cardiomyopathy
  15. DOBUTAMINE [Suspect]
     Active Substance: DOBUTAMINE HYDROCHLORIDE
     Indication: Septic shock
     Dosage: 2 MICROGRAM/KG/MIN
     Route: 065
  16. DOBUTAMINE [Suspect]
     Active Substance: DOBUTAMINE HYDROCHLORIDE
     Indication: Septic cardiomyopathy
     Dosage: UNK, REDUCED
     Route: 065
  17. DOPAMINE [Concomitant]
     Active Substance: DOPAMINE HYDROCHLORIDE
     Indication: Pyrexia
     Dosage: UNK
     Route: 065
  18. DOPAMINE [Concomitant]
     Active Substance: DOPAMINE HYDROCHLORIDE
     Indication: Shock
  19. GARENOXACIN [Concomitant]
     Active Substance: GARENOXACIN
     Indication: Pyrexia
     Dosage: UNK
     Route: 065
  20. GARENOXACIN [Concomitant]
     Active Substance: GARENOXACIN
     Indication: Shock

REACTIONS (1)
  - Drug ineffective for unapproved indication [Unknown]
